FAERS Safety Report 24717998 (Version 1)
Quarter: 2024Q4

REPORT INFORMATION
  Report Type: Spontaneous
  Country: US (occurrence: None)
  Receive Date: 20241209
  Receipt Date: 20241209
  Transmission Date: 20250114
  Serious: Yes (Disabling)
  Sender: Public
  Company Number: None

PATIENT
  Age: 70 Year
  Sex: Female
  Weight: 54.45 kg

DRUGS (6)
  1. LEVOFLOXACIN [Suspect]
     Active Substance: LEVOFLOXACIN
     Indication: Upper respiratory tract infection
     Dosage: OTHER QUANTITY : 1 TABLET(S);?FREQUENCY : DAILY;?
     Route: 048
     Dates: start: 20240412, end: 20240412
  2. VITAMINS [Concomitant]
     Active Substance: VITAMINS
  3. K2 VITAMIN [Concomitant]
  4. D3 VITAMIN [Concomitant]
  5. MAGNESIUM [Concomitant]
     Active Substance: MAGNESIUM
  6. FISH OIL\OMEGA-3 FATTY ACIDS [Concomitant]
     Active Substance: FISH OIL\OMEGA-3 FATTY ACIDS

REACTIONS (21)
  - Heart rate increased [None]
  - Hypoaesthesia [None]
  - Hypoaesthesia [None]
  - Paraesthesia oral [None]
  - Paraesthesia oral [None]
  - Tremor [None]
  - Sensory disturbance [None]
  - Blood glucose decreased [None]
  - Presyncope [None]
  - Arthralgia [None]
  - Arthralgia [None]
  - Arthralgia [None]
  - Arthralgia [None]
  - Asthenia [None]
  - Chest discomfort [None]
  - Gait disturbance [None]
  - Anxiety [None]
  - Arthralgia [None]
  - Weight decreased [None]
  - Taste disorder [None]
  - Toxicity to various agents [None]

NARRATIVE: CASE EVENT DATE: 20240412
